FAERS Safety Report 5200245-7 (Version None)
Quarter: 2007Q1

REPORT INFORMATION
  Report Type: 
  Country: None (occurrence: None)
  Receive Date: 20070105
  Receipt Date: 20070104
  Transmission Date: 20070707
  Serious: Yes (Hospitalization)
  Sender: FDA-Public Use
  Company Number: US-ROXANE LABORATORIES, INC-2006-BP-14663RO

PATIENT
  Sex: Male

DRUGS (2)
  1. MERCAPTOPURINE TABLETS USP, 50MG [Suspect]
     Indication: LEUKAEMIA
     Dosage: 100 MG DAILY
     Route: 048
     Dates: start: 20060216, end: 20060901
  2. METHOTREXATE [Suspect]
     Indication: LEUKAEMIA
     Dosage: 30 MG ONCE/WEEK
     Route: 048
     Dates: start: 20060201

REACTIONS (5)
  - ASCITES [None]
  - ATELECTASIS [None]
  - PANCREATIC NECROSIS [None]
  - PANCREATITIS [None]
  - PLEURAL EFFUSION [None]
